FAERS Safety Report 25085583 (Version 1)
Quarter: 2025Q1

REPORT INFORMATION
  Report Type: Spontaneous
  Country: BR (occurrence: BR)
  Receive Date: 20250317
  Receipt Date: 20250317
  Transmission Date: 20250409
  Serious: Yes (Life-Threatening, Other)
  Sender: ALEXION PHARMACEUTICALS
  Company Number: BR-ASTRAZENECA-202503SAM002260BR

PATIENT
  Age: 65 Year
  Weight: 168.7 kg

DRUGS (6)
  1. FULVESTRANT [Suspect]
     Active Substance: FULVESTRANT
     Indication: Neoplasm
  2. FULVESTRANT [Suspect]
     Active Substance: FULVESTRANT
  3. ATENOLOL [Concomitant]
     Active Substance: ATENOLOL
     Indication: Hypertension
  4. CEPHALEXIN [Concomitant]
     Active Substance: CEPHALEXIN
     Indication: Abscess
  5. IBUPROFEN [Concomitant]
     Active Substance: IBUPROFEN
     Indication: Abscess
  6. PREDNISONE [Concomitant]
     Active Substance: PREDNISONE
     Indication: Abscess

REACTIONS (12)
  - Endocarditis bacterial [Not Recovered/Not Resolved]
  - Mitral valve incompetence [Unknown]
  - Osteonecrosis [Unknown]
  - Toothache [Unknown]
  - Wisdom teeth removal [Unknown]
  - Pain in jaw [Recovered/Resolved]
  - Swelling [Not Recovered/Not Resolved]
  - Abscess drainage [Unknown]
  - Erythema [Not Recovered/Not Resolved]
  - Post procedural infection [Unknown]
  - Disease progression [Unknown]
  - Tooth abscess [Unknown]
